FAERS Safety Report 10621970 (Version 3)
Quarter: 2015Q1

REPORT INFORMATION
  Report Type: Spontaneous
  Country: US (occurrence: US)
  Receive Date: 20141203
  Receipt Date: 20150210
  Transmission Date: 20150720
  Serious: Yes (Life-Threatening, Other)
  Sender: FDA-Public Use
  Company Number: US-009507513-1412USA000798

PATIENT
  Age: 17 Year
  Sex: Female
  Weight: 94.79 kg

DRUGS (11)
  1. LITHIUM [Concomitant]
     Active Substance: LITHIUM CARBONATE
     Dosage: UNK
  2. LAMICTAL [Concomitant]
     Active Substance: LAMOTRIGINE
     Dosage: UNK
  3. DOXYCYCLINE. [Concomitant]
     Active Substance: DOXYCYCLINE
     Dosage: UNK
  4. CLONAZEPAM. [Concomitant]
     Active Substance: CLONAZEPAM
     Dosage: UNK
  5. TRAZODONE HYDROCHLORIDE. [Concomitant]
     Active Substance: TRAZODONE HYDROCHLORIDE
     Dosage: UNK
  6. NEXIUM [Concomitant]
     Active Substance: ESOMEPRAZOLE MAGNESIUM
     Dosage: UNK
  7. INVEGA [Concomitant]
     Active Substance: PALIPERIDONE
     Dosage: UNK
  8. IRON (UNSPECIFIED) [Concomitant]
     Active Substance: IRON
     Dosage: UNK
  9. EFFEXOR [Concomitant]
     Active Substance: VENLAFAXINE HYDROCHLORIDE
     Dosage: UNK
  10. NEXPLANON [Suspect]
     Active Substance: ETONOGESTREL
     Indication: CONTRACEPTION
     Dosage: 68 MG/ ONE ROD, INSERTED EVERY THREE YEARS
     Route: 059
     Dates: start: 20131118, end: 20140925
  11. LEVOTHYROXINE SODIUM. [Concomitant]
     Active Substance: LEVOTHYROXINE SODIUM
     Dosage: UNK

REACTIONS (3)
  - Dizziness [Recovered/Resolved]
  - Haemoglobin decreased [Recovered/Resolved]
  - Vaginal haemorrhage [Recovered/Resolved]

NARRATIVE: CASE EVENT DATE: 2014
